FAERS Safety Report 9383034 (Version 2)
Quarter: 2014Q1

REPORT INFORMATION
  Report Type: Spontaneous
  Country: IT (occurrence: IT)
  Receive Date: 20130704
  Receipt Date: 20140201
  Transmission Date: 20141002
  Serious: Yes (Hospitalization)
  Sender: FDA-Public Use
  Company Number: IT-ROCHE-1244525

PATIENT
  Age: 65 Year
  Sex: Female
  Weight: 92 kg

DRUGS (1)
  1. HERCEPTIN [Suspect]
     Indication: LYMPHOMA
     Route: 042
     Dates: start: 20130511, end: 20130511

REACTIONS (3)
  - Chills [Recovered/Resolved with Sequelae]
  - Laryngospasm [Recovered/Resolved with Sequelae]
  - Malaise [Recovered/Resolved with Sequelae]
